FAERS Safety Report 6370684-X (Version None)
Quarter: 2009Q3

REPORT INFORMATION
  Report Type: 
  Country: None (occurrence: None)
  Receive Date: 20090921
  Receipt Date: 20090921
  Transmission Date: 20100115
  Serious: No
  Sender: FDA-Public Use
  Company Number: None

PATIENT

DRUGS (2)
  1. AMPHETAMINES [Suspect]
     Indication: ATTENTION DEFICIT/HYPERACTIVITY DISORDER
     Dosage: 2 CAPSULES DAILY PO
     Route: 048
     Dates: start: 20090826, end: 20090918
  2. ADDERALL XR 40 [Suspect]

REACTIONS (5)
  - DYSPEPSIA [None]
  - POOR QUALITY SLEEP [None]
  - PRODUCT SUBSTITUTION ISSUE [None]
  - SOMNOLENCE [None]
  - WEIGHT INCREASED [None]
